FAERS Safety Report 8258726 (Version 4)
Quarter: 2012Q4

REPORT INFORMATION
  Report Type: Report from Study
  Country: US (occurrence: US)
  Receive Date: 20111122
  Receipt Date: 20121003
  Transmission Date: 20130627
  Serious: Yes (Hospitalization)
  Sender: FDA-Public Use
  Company Number: US-JNJFOC-20111107972

PATIENT
  Age: 15 Year
  Sex: Female
  Weight: 54.9 kg

DRUGS (3)
  1. REMICADE [Suspect]
     Indication: INFLAMMATORY BOWEL DISEASE
     Route: 042
     Dates: start: 20060406
  2. GROWTH HORMONE [Concomitant]
  3. 6-MERCAPTOPURINE [Concomitant]

REACTIONS (1)
  - Staphylococcal osteomyelitis [Recovered/Resolved]
